FAERS Safety Report 9703586 (Version 1)
Quarter: 2013Q4

REPORT INFORMATION
  Report Type: Spontaneous
  Country: US (occurrence: US)
  Receive Date: 20131122
  Receipt Date: 20131122
  Transmission Date: 20140711
  Serious: No
  Sender: FDA-Public Use
  Company Number: US-PFIZER INC-2013330881

PATIENT
  Age: 86 Year
  Sex: Male
  Weight: 61.22 kg

DRUGS (4)
  1. AZITHROMYCIN [Suspect]
     Indication: INFLAMMATION
     Dosage: 250 MG, 2X/DAY
     Route: 048
     Dates: start: 201309, end: 201309
  2. AZITHROMYCIN [Suspect]
     Dosage: 250 MG, 1X/DAY
     Route: 048
     Dates: start: 201309, end: 20131114
  3. BABY ASPIRIN [Concomitant]
     Dosage: UNK, 1X/DAY
  4. FLOMAX [Concomitant]
     Dosage: UNK, 1X/DAY

REACTIONS (6)
  - Inappropriate schedule of drug administration [Unknown]
  - Positron emission tomogram abnormal [Unknown]
  - Chest discomfort [Unknown]
  - Blood glucose abnormal [Unknown]
  - Cough [Unknown]
  - Nasal congestion [Unknown]
